FAERS Safety Report 17794803 (Version 2)
Quarter: 2020Q2

REPORT INFORMATION
  Report Type: Report from Study
  Country: CA (occurrence: CA)
  Receive Date: 20200515
  Receipt Date: 20200519
  Transmission Date: 20200714
  Serious: Yes (Death, Other)
  Sender: FDA-Public Use
  Company Number: CA-ASTRAZENECA-2020SE63731

PATIENT
  Age: 91 Year
  Sex: Male

DRUGS (1)
  1. CALQUENCE [Suspect]
     Active Substance: ACALABRUTINIB
     Indication: CHRONIC LYMPHOCYTIC LEUKAEMIA
     Route: 048
     Dates: start: 20200130, end: 20200507

REACTIONS (4)
  - Pulmonary embolism [Unknown]
  - Fall [Unknown]
  - Hip fracture [Unknown]
  - Pulmonary hypertension [Fatal]
